FAERS Safety Report 6956969-4 (Version None)
Quarter: 2010Q3

REPORT INFORMATION
  Report Type: 
  Country: None (occurrence: None)
  Receive Date: 20100827
  Receipt Date: 20100827
  Transmission Date: 20110219
  Serious: Yes (Hospitalization)
  Sender: FDA-Public Use
  Company Number: None

PATIENT
  Sex: Female
  Weight: 116.8 kg

DRUGS (4)
  1. MERCAPTOPURINE [Suspect]
     Dosage: 5100 MG
  2. METHOTREXATE [Suspect]
     Dosage: 195 MG
  3. VINCRISTINE SULFATE [Suspect]
     Dosage: 1.74 MG
  4. DEXAMETHASONE [Suspect]
     Dosage: 91 MG

REACTIONS (2)
  - ACUTE LYMPHOCYTIC LEUKAEMIA RECURRENT [None]
  - CONSTIPATION [None]
